FAERS Safety Report 20401831 (Version 2)
Quarter: 2022Q1

REPORT INFORMATION
  Report Type: Spontaneous
  Country: US (occurrence: US)
  Receive Date: 20220131
  Receipt Date: 20220201
  Transmission Date: 20220424
  Serious: No
  Sender: FDA-Public Use
  Company Number: US-ABBVIE-21K-163-4207582-00

PATIENT
  Sex: Female
  Weight: 77.180 kg

DRUGS (1)
  1. HUMIRA [Suspect]
     Active Substance: ADALIMUMAB
     Indication: Product used for unknown indication
     Route: 058

REACTIONS (3)
  - Acne [Unknown]
  - Scar [Unknown]
  - Impaired healing [Unknown]

NARRATIVE: CASE EVENT DATE: 20210101
